FAERS Safety Report 5350306-7 (Version None)
Quarter: 2007Q2

REPORT INFORMATION
  Report Type: 
  Country: None (occurrence: None)
  Receive Date: 20070607
  Receipt Date: 20070530
  Transmission Date: 20071010
  Serious: Yes (Hospitalization)
  Sender: FDA-Public Use
  Company Number: US-AMGEN-STX227052

PATIENT
  Sex: Female

DRUGS (2)
  1. ENBREL [Suspect]
     Indication: RHEUMATOID ARTHRITIS
     Route: 058
     Dates: start: 20060801
  2. METHOTREXATE SODIUM [Concomitant]
     Route: 065
     Dates: start: 20040101

REACTIONS (5)
  - BREAST INFECTION [None]
  - MALAISE [None]
  - NIPPLE INFECTION [None]
  - RHEUMATOID ARTHRITIS [None]
  - VULVOVAGINAL MYCOTIC INFECTION [None]
